APPROVED DRUG PRODUCT: VISTOGARD
Active Ingredient: URIDINE TRIACETATE
Strength: 10GM/PACKET
Dosage Form/Route: GRANULE;ORAL
Application: N208159 | Product #001
Applicant: BTG INTERNATIONAL INC
Approved: Dec 11, 2015 | RLD: Yes | RS: Yes | Type: RX

PATENTS:
Patent 7776838 | Expires: Aug 17, 2027